FAERS Safety Report 5332177-8 (Version None)
Quarter: 2007Q2

REPORT INFORMATION
  Report Type: 
  Country: None (occurrence: None)
  Receive Date: 20070521
  Receipt Date: 20070509
  Transmission Date: 20071010
  Serious: Yes (Death, Other)
  Sender: FDA-Public Use
  Company Number: WAES 0705CAN00068

PATIENT

DRUGS (2)
  1. TIMOPTIC-XE [Suspect]
     Indication: OPEN ANGLE GLAUCOMA
     Dosage: 1 DRPS/PM
     Route: 047
  2. LATANOPROST [Suspect]
     Indication: OPEN ANGLE GLAUCOMA
     Dosage: 1 DRPS/PM
     Route: 047

REACTIONS (2)
  - CARDIOGENIC SHOCK [None]
  - MYOCARDIAL INFARCTION [None]
